FAERS Safety Report 10704505 (Version 2)
Quarter: 2015Q2

REPORT INFORMATION
  Report Type: Other
  Country: IT (occurrence: IT)
  Receive Date: 20150112
  Receipt Date: 20150407
  Transmission Date: 20150821
  Serious: Yes (Hospitalization)
  Sender: FDA-Public Use
  Company Number: IT-MYLANLABS-2015M1000062

PATIENT

DRUGS (3)
  1. HERCEPTIN [Concomitant]
     Active Substance: TRASTUZUMAB
     Indication: ADENOCARCINOMA GASTRIC
     Dosage: 360 MG, UNK
     Route: 042
     Dates: start: 20140819, end: 20141216
  2. CAPECITABINA MYLAN [Suspect]
     Active Substance: CAPECITABINE
     Indication: ADENOCARCINOMA GASTRIC
     Dosage: 6 DF, CYCLE
     Route: 048
     Dates: start: 20140820, end: 20141231
  3. CISPLATINO TEVA [Concomitant]
     Active Substance: CISPLATIN
     Indication: ADENOCARCINOMA GASTRIC
     Dosage: 120 MG, UNK
     Route: 042
     Dates: start: 20140819, end: 20141216

REACTIONS (2)
  - Skin exfoliation [Not Recovered/Not Resolved]
  - Skin ulcer [Not Recovered/Not Resolved]

NARRATIVE: CASE EVENT DATE: 20141229
